FAERS Safety Report 7973442-5 (Version None)
Quarter: 2011Q4

REPORT INFORMATION
  Report Type: 
  Country: None (occurrence: None)
  Receive Date: 20111213
  Receipt Date: 20111205
  Transmission Date: 20120403
  Serious: Yes (Hospitalization, Other)
  Sender: FDA-Public Use
  Company Number: US-AMGEN-USASP2011064469

PATIENT
  Sex: Male

DRUGS (1)
  1. SENSIPAR [Suspect]
     Indication: HYPERPARATHYROIDISM SECONDARY
     Dosage: 60 MG, QD

REACTIONS (4)
  - HYPERCALCAEMIA [None]
  - GASTROINTESTINAL TUBE INSERTION [None]
  - CEREBROVASCULAR ACCIDENT [None]
  - CATHETERISATION CARDIAC [None]
